FAERS Safety Report 5797165-6 (Version None)
Quarter: 2008Q2

REPORT INFORMATION
  Report Type: 
  Country: None (occurrence: None)
  Receive Date: 20080627
  Receipt Date: 20080612
  Transmission Date: 20081010
  Serious: Yes (Hospitalization)
  Sender: FDA-Public Use
  Company Number: DSA_32038_2008

PATIENT
  Age: 58 Year
  Sex: Male

DRUGS (4)
  1. ATIVAN [Suspect]
     Indication: DRUG USE FOR UNKNOWN INDICATION
     Dosage: (DF UNKNOWN)
  2. CLOZAPINE [Suspect]
     Indication: SCHIZOPHRENIA
     Dosage: (500 MG QD ORAL)
     Route: 048
     Dates: start: 20080121
  3. HYOSCINE HBR HYT [Suspect]
     Indication: DRUG USE FOR UNKNOWN INDICATION
     Dosage: (DF UNKNOWN)
  4. OLANZAPINE [Suspect]
     Dosage: (DF UNKNOWN)

REACTIONS (5)
  - BLOOD PRESSURE DECREASED [None]
  - DIZZINESS [None]
  - FATIGUE [None]
  - PALLOR [None]
  - SOMNOLENCE [None]
